FAERS Safety Report 24747951 (Version 2)
Quarter: 2025Q4

REPORT INFORMATION
  Report Type: Spontaneous
  Country: US (occurrence: US)
  Receive Date: 20241218
  Receipt Date: 20251120
  Transmission Date: 20260118
  Serious: No
  Sender: PFIZER
  Company Number: US-PFIZER INC-PV202400163325

PATIENT
  Age: 83 Year
  Sex: Female

DRUGS (3)
  1. IBRANCE [Suspect]
     Active Substance: PALBOCICLIB
     Dosage: 100 MG, 1 TABLET DAILY FOR 21 DAYS THEN 1 WEEK OFF
     Route: 048
  2. IBRANCE [Suspect]
     Active Substance: PALBOCICLIB
     Dosage: EVERY OTHER DAY
  3. IBRANCE [Suspect]
     Active Substance: PALBOCICLIB
     Dosage: 1 PO Q OTHER DAY FOR 21 DAYS THEN 1 WEEK OFF
     Route: 048

REACTIONS (2)
  - Drug hypersensitivity [Unknown]
  - Off label use [Unknown]
